FAERS Safety Report 5840455-9 (Version None)
Quarter: 2008Q3

REPORT INFORMATION
  Report Type: 
  Country: None (occurrence: None)
  Receive Date: 20080807
  Receipt Date: 20080807
  Transmission Date: 20090109
  Serious: Yes (Other)
  Sender: FDA-Public Use
  Company Number: None

PATIENT
  Age: 44 Year
  Sex: Male
  Weight: 158.759 kg

DRUGS (14)
  1. CARBAMAZEPINE [Suspect]
     Indication: MOOD ALTERED
     Dosage: 100 MG ONCE A DAY
     Dates: start: 20080521, end: 20080807
  2. RISPERDAL [Concomitant]
  3. ZYPREXA [Concomitant]
  4. ATIVAN [Concomitant]
  5. LASIX [Concomitant]
  6. TORPOL [Concomitant]
  7. ZOCOR [Concomitant]
  8. PLAVIX [Concomitant]
  9. ASPIRIN [Concomitant]
  10. PRILOSEC [Concomitant]
  11. DUONEB [Concomitant]
  12. LEVOXYL [Concomitant]
  13. GLYBURIDE [Concomitant]
  14. METFORMING [Concomitant]

REACTIONS (3)
  - BLISTER [None]
  - DIZZINESS [None]
  - LETHARGY [None]
